FAERS Safety Report 22240109 (Version 1)
Quarter: 2023Q2

REPORT INFORMATION
  Report Type: Spontaneous
  Country: FR (occurrence: FR)
  Receive Date: 20230421
  Receipt Date: 20230421
  Transmission Date: 20230722
  Serious: Yes (Hospitalization)
  Sender: FDA-Public Use
  Company Number: None

PATIENT
  Age: 81 Year
  Sex: Female

DRUGS (2)
  1. CLINDAMYCIN [Suspect]
     Active Substance: CLINDAMYCIN
     Indication: Arthritis bacterial
     Dosage: 600 MG, 3X/DAY (MORNING, MIDDAY AND EVENING)
     Route: 048
     Dates: start: 20230315, end: 20230404
  2. LINEZOLID [Suspect]
     Active Substance: LINEZOLID
     Indication: Arthritis bacterial
     Dosage: 600 MG, 2X/DAY (MORNING AND EVENING)
     Route: 048
     Dates: start: 20230315, end: 20230322

REACTIONS (2)
  - Pancytopenia [Not Recovered/Not Resolved]
  - Off label use [Recovered/Resolved]

NARRATIVE: CASE EVENT DATE: 20230315
